FAERS Safety Report 6490331-6 (Version None)
Quarter: 2009Q4

REPORT INFORMATION
  Report Type: 
  Country: None (occurrence: None)
  Receive Date: 20091211
  Receipt Date: 20091110
  Transmission Date: 20100525
  Serious: No
  Sender: FDA-Public Use
  Company Number: US-BAYER-200918859NA

PATIENT
  Age: 42 Year
  Sex: Female
  Weight: 78 kg

DRUGS (5)
  1. YAZ [Suspect]
     Indication: ENDOMETRIOSIS
     Route: 048
     Dates: start: 20090101
  2. YASMIN [Suspect]
     Indication: DRUG USE FOR UNKNOWN INDICATION
  3. METFORMIN HCL [Concomitant]
  4. WELLBUTRIN [Concomitant]
  5. HUMIRA [Concomitant]

REACTIONS (2)
  - ALOPECIA [None]
  - VAGINAL HAEMORRHAGE [None]
